FAERS Safety Report 5127420-4 (Version None)
Quarter: 2006Q4

REPORT INFORMATION
  Report Type: 
  Country: None (occurrence: None)
  Receive Date: 20061013
  Receipt Date: 20061013
  Transmission Date: 20070319
  Serious: Yes (Other)
  Sender: FDA-Public Use
  Company Number: None

PATIENT
  Age: 15 Month
  Sex: Male
  Weight: 12.2471 kg

DRUGS (1)
  1. ACTH [Suspect]
     Indication: COMPLEX PARTIAL SEIZURES
     Dosage: 80 UNITS/ML DAILY
     Dates: start: 20060928

REACTIONS (1)
  - VOMITING [None]
